FAERS Safety Report 12624451 (Version 1)
Quarter: 2016Q3

REPORT INFORMATION
  Report Type: Report from Study
  Country: US (occurrence: US)
  Receive Date: 20160805
  Receipt Date: 20160805
  Transmission Date: 20161109
  Serious: No
  Sender: FDA-Public Use
  Company Number: US-AMGEN-USASL2016099626

PATIENT
  Age: 52 Year
  Sex: Female

DRUGS (1)
  1. ENBREL [Suspect]
     Active Substance: ETANERCEPT
     Indication: RHEUMATOID ARTHRITIS
     Dosage: UNK UNK, UNK
     Route: 065

REACTIONS (9)
  - Night sweats [Unknown]
  - Agitation [Unknown]
  - Injection site pain [Unknown]
  - Feeling abnormal [Unknown]
  - Fear [Unknown]
  - Paranoia [Unknown]
  - Menopausal symptoms [Unknown]
  - Malaise [Unknown]
  - Hyperhidrosis [Unknown]
